FAERS Safety Report 5893148-6 (Version None)
Quarter: 2008Q3

REPORT INFORMATION
  Report Type: 
  Country: None (occurrence: None)
  Receive Date: 20080923
  Receipt Date: 20080711
  Transmission Date: 20090109
  Serious: No
  Sender: FDA-Public Use
  Company Number: US-ASTRAZENECA-2007UW20449

PATIENT
  Age: 33 Year
  Sex: Female
  Weight: 59.1 kg

DRUGS (6)
  1. SEROQUEL [Suspect]
     Indication: BIPOLAR DISORDER
     Route: 048
     Dates: start: 20010101, end: 20070101
  2. SEROQUEL [Suspect]
     Indication: SLEEP DISORDER
     Route: 048
     Dates: start: 20010101, end: 20070101
  3. SEROQUEL [Suspect]
     Route: 048
     Dates: start: 20010101, end: 20070101
  4. SEROQUEL [Suspect]
     Route: 048
     Dates: start: 20010101, end: 20070101
  5. ABILIFY [Concomitant]
     Route: 048
     Dates: start: 20040101
  6. THORAZINE [Concomitant]
     Dates: start: 20010101

REACTIONS (4)
  - BLOOD CHOLESTEROL INCREASED [None]
  - DIABETES MELLITUS [None]
  - GESTATIONAL DIABETES [None]
  - HYPERTENSION [None]
